FAERS Safety Report 7686091-3 (Version None)
Quarter: 2011Q3

REPORT INFORMATION
  Report Type: 
  Country: None (occurrence: None)
  Receive Date: 20110816
  Receipt Date: 20110811
  Transmission Date: 20111222
  Serious: Yes (Other)
  Sender: FDA-Public Use
  Company Number: US-PFIZER INC-2011186015

PATIENT
  Sex: Female

DRUGS (3)
  1. REMERON [Concomitant]
     Dosage: 30 MG, UNK
     Dates: start: 20110805
  2. EFFEXOR XR [Suspect]
     Dosage: UNK
  3. REMERON [Concomitant]
     Dosage: 15 MG, UNK
     Dates: end: 20110804

REACTIONS (1)
  - ANXIETY [None]
